FAERS Safety Report 6178510-9 (Version None)
Quarter: 2009Q2

REPORT INFORMATION
  Report Type: 
  Country: None (occurrence: None)
  Receive Date: 20090504
  Receipt Date: 20080709
  Transmission Date: 20091009
  Serious: No
  Sender: FDA-Public Use
  Company Number: DE-ALEXION-A200800156

PATIENT

DRUGS (9)
  1. SOLIRIS [Suspect]
     Indication: PAROXYSMAL NOCTURNAL HAEMOGLOBINURIA
  2. DECORTIN [Concomitant]
     Indication: HAEMOLYSIS
     Dosage: 2 MG, UNK
     Route: 048
  3. NEXIUM [Concomitant]
     Indication: GASTRITIS PROPHYLAXIS
     Dosage: 40 MG, UNK
     Route: 048
  4. DILATREND [Concomitant]
     Indication: HYPERTENSION
     Dosage: 6.25 MG, UNK
     Route: 048
  5. COAPROVEL [Concomitant]
     Indication: HYPERTENSION
     Dosage: 150/12.5, UNK
     Route: 048
  6. FOLSAN [Concomitant]
     Dosage: 5 MG, UNK
     Route: 048
  7. CALCIUM WITH VITAMIN D [Concomitant]
     Indication: OSTEOPOROSIS
     Dosage: 1000/2000
     Route: 048
  8. INSIDON [Concomitant]
     Indication: ANTIDEPRESSANT THERAPY
     Dosage: 50 MG, UNK
     Route: 048
  9. STILNOX                            /00914901/ [Concomitant]
     Indication: INSOMNIA

REACTIONS (1)
  - MYALGIA [None]
